FAERS Safety Report 23701937 (Version 1)
Quarter: 2024Q2

REPORT INFORMATION
  Report Type: Spontaneous
  Country: US (occurrence: None)
  Receive Date: 20240402
  Receipt Date: 20240402
  Transmission Date: 20240716
  Serious: No
  Sender: FDA-Public Use
  Company Number: None

PATIENT
  Sex: Female

DRUGS (3)
  1. NUCALA [Suspect]
     Active Substance: MEPOLIZUMAB
  2. ADEMPAS [Concomitant]
     Active Substance: RIOCIGUAT
  3. TAKHZYRO [Concomitant]

REACTIONS (6)
  - Swelling face [None]
  - Laryngeal oedema [None]
  - Dyspnoea [None]
  - Chest pain [None]
  - Urinary tract infection [None]
  - Device related infection [None]
